FAERS Safety Report 7797441-1 (Version None)
Quarter: 2011Q4

REPORT INFORMATION
  Report Type: 
  Country: None (occurrence: None)
  Receive Date: 20111005
  Receipt Date: 20110928
  Transmission Date: 20120403
  Serious: Yes (Hospitalization, Disabling)
  Sender: FDA-Public Use
  Company Number: US-ROCHE-401299

PATIENT
  Sex: Male
  Weight: 70.3 kg

DRUGS (3)
  1. TAC 3 [Concomitant]
     Indication: ACNE
     Dates: start: 20020501, end: 20020501
  2. ACCUTANE [Suspect]
     Route: 048
     Dates: start: 20020326, end: 20020630
  3. ACCUTANE [Suspect]
     Indication: ACNE CYSTIC
     Route: 048
     Dates: start: 20020130, end: 20020326

REACTIONS (13)
  - ANAL ABSCESS [None]
  - BLOOD CHOLESTEROL INCREASED [None]
  - INFLAMMATORY BOWEL DISEASE [None]
  - INTERNAL INJURY [None]
  - RECTAL HAEMORRHAGE [None]
  - SOMNOLENCE [None]
  - SUPRAPUBIC PAIN [None]
  - INTESTINAL HAEMORRHAGE [None]
  - LETHARGY [None]
  - HEADACHE [None]
  - LIP DRY [None]
  - CROHN'S DISEASE [None]
  - GASTROINTESTINAL DISORDER [None]
